FAERS Safety Report 8560463-7 (Version None)
Quarter: 2012Q3

REPORT INFORMATION
  Report Type: 
  Country: None (occurrence: None)
  Receive Date: 20120802
  Receipt Date: 20120724
  Transmission Date: 20120928
  Serious: Yes (Other)
  Sender: FDA-Public Use
  Company Number: US-ASTRAZENECA-2012SE34028

PATIENT
  Age: 81 Year
  Sex: Female

DRUGS (3)
  1. PENICILLIN [Concomitant]
  2. ARIMIDEX [Suspect]
     Route: 048
  3. EYE DROPS [Concomitant]
     Indication: GLAUCOMA

REACTIONS (6)
  - BRONCHITIS [None]
  - SWOLLEN TONGUE [None]
  - FATIGUE [None]
  - LUNG INFECTION [None]
  - DRUG HYPERSENSITIVITY [None]
  - LUNG NEOPLASM [None]
